FAERS Safety Report 25170397 (Version 1)
Quarter: 2025Q2

REPORT INFORMATION
  Report Type: Spontaneous
  Country: US (occurrence: US)
  Receive Date: 20250408
  Receipt Date: 20250408
  Transmission Date: 20250717
  Serious: No
  Sender: ALVOGEN
  Company Number: US-ALVOGEN-2024095300

PATIENT
  Sex: Female

DRUGS (2)
  1. ESTRADIOL [Suspect]
     Active Substance: ESTRADIOL
     Indication: Cystitis
     Dates: start: 202407
  2. MACROBID [Concomitant]
     Active Substance: NITROFURANTOIN\NITROFURANTOIN MONOHYDRATE
     Indication: Cystitis

REACTIONS (3)
  - Eye infection [Unknown]
  - Vulvovaginal mycotic infection [Unknown]
  - Off label use [Unknown]

NARRATIVE: CASE EVENT DATE: 20240101
